FAERS Safety Report 8009289-3 (Version None)
Quarter: 2011Q4

REPORT INFORMATION
  Report Type: 
  Country: None (occurrence: None)
  Receive Date: 20111227
  Receipt Date: 20111215
  Transmission Date: 20120403
  Serious: Yes (Hospitalization)
  Sender: FDA-Public Use
  Company Number: GR-MEDIMMUNE-MEDI-0014251

PATIENT
  Age: 3 Month
  Sex: Male

DRUGS (3)
  1. SYNAGIS [Suspect]
     Dates: start: 20110101, end: 20110101
  2. COMBINED VACCINE [Concomitant]
  3. VACCINE FOR ROTAVIRUS [Concomitant]

REACTIONS (1)
  - BRONCHIOLITIS [None]
